FAERS Safety Report 10390125 (Version 1)
Quarter: 2014Q1

REPORT INFORMATION
  Report Type: Spontaneous
  Country: US (occurrence: None)
  Receive Date: 20140306
  Receipt Date: 20140306
  Transmission Date: 20141002
  Serious: Yes (Hospitalization)
  Sender: FDA-Public Use
  Company Number: 163-21880-13012283

PATIENT
  Age: 81 Year
  Sex: Female
  Weight: 69.9 kg

DRUGS (5)
  1. REVLIMID [Suspect]
     Indication: PLASMA CELL MYELOMA
     Route: 048
     Dates: start: 20110218, end: 2011
  2. ZOCOR [Concomitant]
  3. NEXIUM (ESOMEPRAZOLE) [Concomitant]
  4. HCTZ [Concomitant]
  5. LISINOPRIL [Concomitant]

REACTIONS (1)
  - Cerebrovascular accident [None]
